FAERS Safety Report 9171204 (Version 1)
Quarter: 2013Q1

REPORT INFORMATION
  Report Type: Spontaneous
  Country: US (occurrence: None)
  Receive Date: 20130312
  Receipt Date: 20130312
  Transmission Date: 20140127
  Serious: Yes (Other)
  Sender: FDA-Public Use
  Company Number: IPC201302-000057

PATIENT
  Sex: Male
  Weight: 77.11 kg

DRUGS (6)
  1. ATENOLOL (ATENOLOL) (ATENOLOL) [Suspect]
     Indication: ATRIAL FIBRILLATION
  2. TRAZODONE [Concomitant]
  3. SIMVASTATIN [Concomitant]
  4. CALCIUM CARBONATE/VITAMIN D [Concomitant]
  5. CALCIUM [Suspect]
  6. WARFARIN [Concomitant]

REACTIONS (3)
  - Hypertension [None]
  - Heart rate increased [None]
  - Stress fracture [None]
